FAERS Safety Report 7650467-0 (Version None)
Quarter: 2011Q3

REPORT INFORMATION
  Report Type: 
  Country: None (occurrence: None)
  Receive Date: 20110802
  Receipt Date: 20110121
  Transmission Date: 20111222
  Serious: Yes (Hospitalization)
  Sender: FDA-Public Use
  Company Number: US-GLAXOSMITHKLINE-A0908819A

PATIENT
  Age: 15 Year
  Sex: Female
  Weight: 45.9 kg

DRUGS (3)
  1. RITALIN [Concomitant]
     Dates: start: 20070827
  2. ADDERALL 10 [Concomitant]
  3. LAMICTAL [Suspect]
     Indication: BIPOLAR DISORDER
     Dosage: 75MG TWICE PER DAY
     Route: 048
     Dates: start: 20071016, end: 20071102

REACTIONS (4)
  - RETINAL DETACHMENT [None]
  - GLAUCOMA [None]
  - STEVENS-JOHNSON SYNDROME [None]
  - TOXIC EPIDERMAL NECROLYSIS [None]
